FAERS Safety Report 9439723 (Version 1)
Quarter: 2013Q3

REPORT INFORMATION
  Report Type: Spontaneous
  Country: US (occurrence: None)
  Receive Date: 20130802
  Receipt Date: 20130802
  Transmission Date: 20140515
  Serious: Yes (Life-Threatening, Disabling)
  Sender: FDA-Public Use
  Company Number: None

PATIENT
  Age: 42 Year
  Sex: Male
  Weight: 77.11 kg

DRUGS (2)
  1. PHENOBARBITAL [Suspect]
     Indication: CONVULSION
     Dosage: 64.8 MG TWICE DAILY PO
     Route: 048
     Dates: start: 20100209, end: 20130801
  2. ZONISAMIDE [Suspect]
     Indication: CONVULSION
     Dosage: 100 MG 2 MORNING 3 NIGHT PO
     Route: 048
     Dates: start: 20090402, end: 20130801

REACTIONS (3)
  - Rash [None]
  - Abdominal pain upper [None]
  - Malaise [None]
